FAERS Safety Report 8901668 (Version 1)
Quarter: 2012Q4

REPORT INFORMATION
  Report Type: 
  Country: CA (occurrence: None)
  Receive Date: 20121108
  Receipt Date: 20121108
  Transmission Date: 20130627
  Serious: Yes (Hospitalization)
  Sender: FDA-Public Use
  Company Number: None

PATIENT
  Sex: Male
  Weight: 100 kg

DRUGS (1)
  1. CISPLATIN [Suspect]
     Dosage: Cisplatin 464 mg

REACTIONS (11)
  - Deep vein thrombosis [None]
  - Pallor [None]
  - Chills [None]
  - Arthralgia [None]
  - Arthralgia [None]
  - Haemoglobin decreased [None]
  - Red blood cell count decreased [None]
  - Blood albumin decreased [None]
  - Activated partial thromboplastin time prolonged [None]
  - Medical device complication [None]
  - Poor peripheral circulation [None]
